FAERS Safety Report 9280981 (Version 1)
Quarter: 2013Q2

REPORT INFORMATION
  Report Type: Spontaneous
  Country: US (occurrence: None)
  Receive Date: 20130508
  Receipt Date: 20130508
  Transmission Date: 20140414
  Serious: Yes (Hospitalization)
  Sender: FDA-Public Use
  Company Number: None

PATIENT
  Age: 42 Year
  Sex: Male
  Weight: 53.5 kg

DRUGS (2)
  1. CARBOPLATIN [Suspect]
  2. TAXOTERE [Suspect]

REACTIONS (4)
  - Tumour pain [None]
  - Swelling [None]
  - Blood culture positive [None]
  - Escherichia infection [None]
